FAERS Safety Report 10770900 (Version 1)
Quarter: 2015Q1

REPORT INFORMATION
  Report Type: Spontaneous
  Country: US (occurrence: US)
  Receive Date: 20150206
  Receipt Date: 20150206
  Transmission Date: 20150721
  Serious: Yes (Other)
  Sender: FDA-Public Use
  Company Number: US-TEVA-539211USA

PATIENT
  Sex: Female

DRUGS (2)
  1. COPAXONE [Suspect]
     Active Substance: GLATIRAMER ACETATE
     Indication: MULTIPLE SCLEROSIS
     Dosage: UNKNOWN DOSAGE
  2. TECFIDERA [Suspect]
     Active Substance: DIMETHYL FUMARATE
     Indication: MULTIPLE SCLEROSIS

REACTIONS (17)
  - Suicidal ideation [Unknown]
  - Mental impairment [Unknown]
  - Injection site reaction [Unknown]
  - Hypoaesthesia [Unknown]
  - Balance disorder [Unknown]
  - Muscular weakness [Unknown]
  - Vision blurred [Unknown]
  - Major depression [Unknown]
  - Visual impairment [Unknown]
  - Memory impairment [Unknown]
  - Pain [Unknown]
  - Visual field defect [Unknown]
  - Gait disturbance [Unknown]
  - Walking aid user [Unknown]
  - Fall [Unknown]
  - Activities of daily living impaired [Unknown]
  - Asthenia [Unknown]
